FAERS Safety Report 6139980-5 (Version None)
Quarter: 2009Q1

REPORT INFORMATION
  Report Type: 
  Country: None (occurrence: None)
  Receive Date: 20090331
  Receipt Date: 20090331
  Transmission Date: 20090719
  Serious: Yes (Death)
  Sender: FDA-Public Use
  Company Number: None

PATIENT
  Age: 69 Year
  Sex: Female
  Weight: 72.5755 kg

DRUGS (2)
  1. LEVAQUIN [Suspect]
     Indication: URINARY TRACT INFECTION
     Dosage: 500 MG 1 TABLET DAILY PO
     Route: 048
     Dates: start: 20070830, end: 20070908
  2. AMITRIPTYLINE HCL [Suspect]
     Indication: DEPRESSION
     Dosage: 50 MG 1 OR 2 AT BEDTIME PO
     Route: 048
     Dates: start: 19850401, end: 20070907

REACTIONS (1)
  - URINARY TRACT INFECTION [None]
